FAERS Safety Report 7242996-9 (Version None)
Quarter: 2011Q1

REPORT INFORMATION
  Report Type: 
  Country: None (occurrence: None)
  Receive Date: 20110125
  Receipt Date: 20110120
  Transmission Date: 20110831
  Serious: Yes (Death, Life-Threatening, Hospitalization)
  Sender: FDA-Public Use
  Company Number: JP-SANOFI-AVENTIS-2011SA003807

PATIENT
  Age: 73 Year
  Sex: Male
  Weight: 55.1 kg

DRUGS (17)
  1. LOPEMIN [Concomitant]
     Route: 048
     Dates: start: 20110106, end: 20110110
  2. CHLOR-TRIMETON [Concomitant]
     Route: 041
     Dates: start: 20110106
  3. TS-1 [Suspect]
     Indication: GASTRIC CANCER
     Route: 048
     Dates: start: 20101227, end: 20110106
  4. KENALOG [Concomitant]
     Indication: STOMATITIS
     Route: 048
     Dates: start: 20110106, end: 20110117
  5. LOXOPROFEN [Concomitant]
     Indication: PYREXIA
     Route: 048
     Dates: start: 20110106, end: 20110112
  6. LACTEC [Concomitant]
     Indication: PROPHYLAXIS AGAINST DEHYDRATION
     Route: 041
     Dates: start: 20110111, end: 20110117
  7. INTRALIPID 10% [Concomitant]
     Indication: DECREASED APPETITE
     Route: 041
     Dates: start: 20110108, end: 20110111
  8. INOVAN [Concomitant]
     Route: 041
     Dates: start: 20110117, end: 20110117
  9. ELPLAT [Suspect]
     Indication: GASTRIC CANCER
     Route: 041
     Dates: start: 20101227, end: 20101227
  10. ASPIRIN [Concomitant]
     Indication: CEREBRAL INFARCTION
     Route: 048
     Dates: start: 20050907, end: 20110112
  11. SOLDEM 1 [Concomitant]
     Indication: PROPHYLAXIS AGAINST DEHYDRATION
     Route: 041
     Dates: start: 20110111, end: 20110117
  12. TAKEPRON [Concomitant]
     Dosage: 30-60 MG
     Route: 041
     Dates: start: 00120101, end: 20110117
  13. ALLEGRA [Concomitant]
     Indication: RASH
     Route: 048
     Dates: start: 20110106, end: 20110112
  14. ELECTROLYTE SOLUTIONS [Concomitant]
     Indication: DECREASED APPETITE
     Dosage: 1000-2000 ML
     Route: 041
     Dates: start: 20110106, end: 20110117
  15. TAKEPRON [Concomitant]
     Indication: GASTRITIS PROPHYLAXIS
     Route: 048
     Dates: start: 20050907, end: 20110112
  16. LOCOID [Concomitant]
     Route: 048
     Dates: start: 20110107, end: 20110117
  17. ANTEBATE [Concomitant]
     Indication: RASH
     Dates: start: 20110107, end: 20110117

REACTIONS (5)
  - DISSEMINATED INTRAVASCULAR COAGULATION [None]
  - MULTI-ORGAN FAILURE [None]
  - CEREBRAL INFARCTION [None]
  - SEPSIS [None]
  - FEBRILE NEUTROPENIA [None]
